FAERS Safety Report 5845589-0 (Version None)
Quarter: 2008Q3

REPORT INFORMATION
  Report Type: 
  Country: None (occurrence: None)
  Receive Date: 20080731
  Receipt Date: 20080504
  Transmission Date: 20090109
  Serious: No
  Sender: FDA-Public Use
  Company Number: US200805000707

PATIENT
  Age: 62 Year
  Sex: Female
  Weight: 135.6 kg

DRUGS (9)
  1. BYETTA [Suspect]
     Indication: TYPE 2 DIABETES MELLITUS
     Dosage: 5 UG, 2/D, SUBCUTANEOUS; 10 UG, 2/D, SUBCUTANEOUS
     Route: 058
     Dates: start: 20080301, end: 20080401
  2. BYETTA [Suspect]
     Indication: TYPE 2 DIABETES MELLITUS
     Dosage: 5 UG, 2/D, SUBCUTANEOUS; 10 UG, 2/D, SUBCUTANEOUS
     Route: 058
     Dates: start: 20080401
  3. EXENATIDE 5MCG PEN, DISPOSABLE DEVICE (EXENATIDE PEN (5MCG)) PEN,DISPO [Concomitant]
  4. GLUCOPHAGE [Concomitant]
  5. AMARYL [Concomitant]
  6. HYZAAR [Concomitant]
  7. VITAMIN E (HERBAL OIL NOS) [Concomitant]
  8. ASPIRIN [Concomitant]
  9. DETROL [Concomitant]

REACTIONS (6)
  - BLOOD GLUCOSE INCREASED [None]
  - NASOPHARYNGITIS [None]
  - PRURITUS [None]
  - SINUS CONGESTION [None]
  - URTICARIA [None]
  - WEIGHT DECREASED [None]
